FAERS Safety Report 18243254 (Version 1)
Quarter: 2020Q3

REPORT INFORMATION
  Report Type: Spontaneous
  Country: US (occurrence: US)
  Receive Date: 20200908
  Receipt Date: 20200908
  Transmission Date: 20201103
  Serious: No
  Sender: FDA-Public Use
  Company Number: US-BAYER-2020-189194

PATIENT
  Sex: Male

DRUGS (1)
  1. MIRALAX [Suspect]
     Active Substance: POLYETHYLENE GLYCOL 3350
     Indication: GASTROINTESTINAL DISORDER
     Dosage: UNK, QD
     Route: 048

REACTIONS (6)
  - Incorrect dose administered [Unknown]
  - Frequent bowel movements [None]
  - Diarrhoea [Unknown]
  - Abdominal pain [Unknown]
  - Faeces soft [Unknown]
  - Incorrect product administration duration [None]
